FAERS Safety Report 20921090 (Version 1)
Quarter: 2022Q2

REPORT INFORMATION
  Report Type: Spontaneous
  Country: US (occurrence: None)
  Receive Date: 20220606
  Receipt Date: 20220606
  Transmission Date: 20220721
  Serious: No
  Sender: FDA-Public Use
  Company Number: None

PATIENT
  Age: 72 Year
  Sex: Female
  Weight: 59.85 kg

DRUGS (1)
  1. CLOTRIMAZOLE TROCHE [Suspect]
     Active Substance: CLOTRIMAZOLE
     Indication: Oral pain
     Dosage: OTHER QUANTITY : 1 TABLET(S);?OTHER FREQUENCY : 5 TIMES A DAY;?
     Route: 048

REACTIONS (8)
  - Throat lesion [None]
  - Rash macular [None]
  - Oral discomfort [None]
  - Vulvovaginal burning sensation [None]
  - Anorectal discomfort [None]
  - Pain in extremity [None]
  - Gait inability [None]
  - Dyspepsia [None]

NARRATIVE: CASE EVENT DATE: 20220603
